FAERS Safety Report 21759103 (Version 4)
Quarter: 2023Q1

REPORT INFORMATION
  Report Type: Report from Study
  Country: US (occurrence: US)
  Receive Date: 20221221
  Receipt Date: 20230324
  Transmission Date: 20230418
  Serious: Yes (Other)
  Sender: FDA-Public Use
  Company Number: US-ABBVIE-4243792

PATIENT
  Age: 73 Year
  Sex: Female
  Weight: 62 kg

DRUGS (3)
  1. HUMIRA [Suspect]
     Active Substance: ADALIMUMAB
     Indication: Psoriatic arthropathy
     Dosage: CITRATE FREE
     Route: 058
     Dates: start: 202212
  2. HUMIRA [Suspect]
     Active Substance: ADALIMUMAB
     Dosage: CITRATE FREE
     Route: 058
     Dates: end: 202211
  3. AZATHIOPRINE [Concomitant]
     Active Substance: AZATHIOPRINE
     Indication: Product used for unknown indication

REACTIONS (11)
  - Osteoporosis [Recovered/Resolved]
  - Anaemia [Not Recovered/Not Resolved]
  - Cyst [Recovered/Resolved]
  - Arthritis [Recovered/Resolved]
  - Spinal osteoarthritis [Recovered/Resolved]
  - Exostosis [Recovered/Resolved]
  - Osteoarthritis [Recovered/Resolved]
  - Spinal fusion surgery [Unknown]
  - Shoulder arthroplasty [Recovered/Resolved]
  - Arthralgia [Recovered/Resolved]
  - Bone disorder [Unknown]

NARRATIVE: CASE EVENT DATE: 20220806
